FAERS Safety Report 19034317 (Version 1)
Quarter: 2021Q1

REPORT INFORMATION
  Report Type: Other
  Country: IN (occurrence: IN)
  Receive Date: 20210320
  Receipt Date: 20210320
  Transmission Date: 20210420
  Serious: Yes (Other)
  Sender: FDA-Public Use
  Company Number: IN-LAURUS-001064

PATIENT
  Weight: 72 kg

DRUGS (1)
  1. HYDROXYCHLOROQUINE [Suspect]
     Active Substance: HYDROXYCHLOROQUINE
     Indication: RHEUMATOID ARTHRITIS
     Dosage: MEAN DAILY DOSE: 5.1 MG/KG RBW AND 6.2 MG/KG IBW/DAY, CUMMULATIVE DOSE: 1263.9 G.

REACTIONS (2)
  - Retinopathy [Unknown]
  - Toxicity to various agents [Unknown]
